FAERS Safety Report 23934500 (Version 1)
Quarter: 2024Q2

REPORT INFORMATION
  Report Type: Spontaneous
  Country: US (occurrence: US)
  Receive Date: 20240603
  Receipt Date: 20240603
  Transmission Date: 20240715
  Serious: No
  Sender: FDA-Public Use
  Company Number: US-GENMAB-2024-01006

PATIENT
  Sex: Female

DRUGS (1)
  1. EPKINLY [Suspect]
     Active Substance: EPCORITAMAB-BYSP
     Indication: Burkitt^s lymphoma stage III
     Dosage: 48 MILLIGRAM FREQUENCY: EVERY 14 DAYS
     Route: 058
     Dates: start: 20240313

REACTIONS (1)
  - Off label use [Unknown]
